FAERS Safety Report 7572405-1 (Version None)
Quarter: 2011Q2

REPORT INFORMATION
  Report Type: 
  Country: None (occurrence: None)
  Receive Date: 20110624
  Receipt Date: 20110622
  Transmission Date: 20111010
  Serious: Yes (Death, Other)
  Sender: FDA-Public Use
  Company Number: PHHY2011AU29132

PATIENT
  Sex: Male

DRUGS (3)
  1. CLOZAPINE [Suspect]
     Indication: SCHIZOPHRENIA
     Dosage: 400 MG, UNK
     Dates: start: 20020730, end: 20110314
  2. CITALOPRAM HYDROBROMIDE [Concomitant]
     Indication: DEPRESSION
     Dosage: 40 MG, QD
     Route: 048
  3. PANTOPRAZOLE [Concomitant]
     Dosage: 20 MG, QD
     Route: 048

REACTIONS (3)
  - ANTIPSYCHOTIC DRUG LEVEL INCREASED [None]
  - DEATH [None]
  - MEAN CELL HAEMOGLOBIN CONCENTRATION INCREASED [None]
